FAERS Safety Report 6446226-7 (Version None)
Quarter: 2009Q4

REPORT INFORMATION
  Report Type: 
  Country: None (occurrence: None)
  Receive Date: 20091119
  Receipt Date: 20091111
  Transmission Date: 20100525
  Serious: Yes (Other)
  Sender: FDA-Public Use
  Company Number: US-ASTRAZENECA-2006UW08835

PATIENT
  Age: 701 Month
  Sex: Male
  Weight: 90.3 kg

DRUGS (15)
  1. SEROQUEL [Suspect]
     Indication: BIPOLAR DISORDER
     Dosage: 25 MG TO 800 MG
     Route: 048
     Dates: start: 20020425, end: 20050523
  2. SEROQUEL [Suspect]
     Indication: SLEEP DISORDER
     Dosage: 25 MG TO 800 MG
     Route: 048
     Dates: start: 20020425, end: 20050523
  3. RISPERDAL [Suspect]
     Indication: BIPOLAR DISORDER
     Route: 048
     Dates: start: 20010201, end: 20020401
  4. RISPERDAL [Suspect]
     Dosage: 0.5 MG TO 4 MG
     Route: 048
     Dates: start: 20040401, end: 20040801
  5. WELLBUTRIN SR [Concomitant]
     Dates: start: 20020425
  6. ZOCOR [Concomitant]
     Dosage: 40 MG - 80 MG
     Route: 048
     Dates: start: 20040915
  7. TERAZOSIN HCL [Concomitant]
     Route: 048
     Dates: start: 20040915
  8. PAXIL [Concomitant]
     Route: 048
     Dates: start: 20040915
  9. LITHIUM CARBONATE [Concomitant]
     Dosage: 300 MG -900 MG
     Route: 048
     Dates: start: 20040519
  10. DEPAKOTE ER [Concomitant]
     Dosage: 500 MG - 1000 MG
     Dates: start: 20060613
  11. ZOLOFT [Concomitant]
     Dates: start: 20060613
  12. ABILIFY [Concomitant]
     Dates: start: 20080101
  13. LITHIUM CARBONATE [Concomitant]
  14. CLONAZEPAM [Concomitant]
     Route: 048
     Dates: start: 20040416
  15. VALPROIC ACID [Concomitant]
     Route: 048
     Dates: start: 20040317

REACTIONS (7)
  - DIABETES MELLITUS [None]
  - DIABETIC FOOT [None]
  - DIABETIC NEUROPATHY [None]
  - FALL [None]
  - NEUROPATHY PERIPHERAL [None]
  - PERIPHERAL SENSORY NEUROPATHY [None]
  - TYPE 2 DIABETES MELLITUS [None]
